FAERS Safety Report 11240701 (Version 1)
Quarter: 2015Q3

REPORT INFORMATION
  Report Type: Spontaneous
  Country: DE (occurrence: DE)
  Receive Date: 20150706
  Receipt Date: 20150706
  Transmission Date: 20151125
  Serious: Yes (Other)
  Sender: FDA-Public Use
  Company Number: GXKR2015DE003161

PATIENT
  Sex: Male

DRUGS (2)
  1. AMINEURIN [Suspect]
     Active Substance: AMITRIPTYLINE HYDROCHLORIDE
     Indication: POLYNEUROPATHY
     Dosage: 10 MG, QD
     Route: 048
  2. PREGABALIN. [Concomitant]
     Active Substance: PREGABALIN
     Indication: PRODUCT USED FOR UNKNOWN INDICATION
     Route: 065

REACTIONS (3)
  - Tunnel vision [Unknown]
  - Slow response to stimuli [Unknown]
  - Dizziness [Unknown]
